FAERS Safety Report 6194214-0 (Version None)
Quarter: 2009Q2

REPORT INFORMATION
  Report Type: 
  Country: None (occurrence: None)
  Receive Date: 20090515
  Receipt Date: 20090515
  Transmission Date: 20091009
  Serious: Yes (Hospitalization)
  Sender: FDA-Public Use
  Company Number: None

PATIENT
  Age: 70 Year
  Sex: Male
  Weight: 97.0698 kg

DRUGS (1)
  1. TOVIAZ [Suspect]
     Indication: STRESS URINARY INCONTINENCE
     Dosage: 4MG TWICE DAILY @HS PO
     Route: 048
     Dates: start: 20090419, end: 20090504

REACTIONS (3)
  - ARRHYTHMIA [None]
  - DIZZINESS [None]
  - LOSS OF CONSCIOUSNESS [None]
